FAERS Safety Report 10518543 (Version 1)
Quarter: 2014Q4

REPORT INFORMATION
  Report Type: Report from Study
  Country: AU (occurrence: AU)
  Receive Date: 20141015
  Receipt Date: 20141015
  Transmission Date: 20150528
  Serious: Yes (Other)
  Sender: FDA-Public Use
  Company Number: AU-LEO PHARMA-220824

PATIENT
  Age: 61 Year
  Sex: Male
  Weight: 61 kg

DRUGS (8)
  1. BLINDED IMP [Suspect]
     Active Substance: INVESTIGATIONAL PRODUCT
     Indication: ACTINIC KERATOSIS
     Dates: start: 20130116, end: 20130117
  2. MELOXICAM. [Concomitant]
     Active Substance: MELOXICAM
     Indication: BACK PAIN
     Route: 048
  3. METOCLOPRAMIDE. [Concomitant]
     Active Substance: METOCLOPRAMIDE
     Indication: VOMITING
     Dates: start: 20130110, end: 20130212
  4. DULOXETINE [Concomitant]
     Active Substance: DULOXETINE
     Indication: DEPRESSION
     Route: 048
  5. PICATO [Suspect]
     Active Substance: INGENOL MEBUTATE
     Indication: ACTINIC KERATOSIS
     Route: 061
     Dates: start: 20130116, end: 20130117
  6. LOPERAMIDE [Concomitant]
     Active Substance: LOPERAMIDE
     Indication: DIARRHOEA
     Route: 048
     Dates: start: 20130110, end: 20130112
  7. NORFLOXACIN [Concomitant]
     Active Substance: NORFLOXACIN
     Indication: GASTROENTERITIS
     Route: 048
     Dates: start: 20130110, end: 20130113
  8. ESOMEPRAZOLE [Concomitant]
     Active Substance: ESOMEPRAZOLE
     Indication: GASTROOESOPHAGEAL REFLUX DISEASE
     Route: 048

REACTIONS (1)
  - Squamous cell carcinoma [Unknown]

NARRATIVE: CASE EVENT DATE: 20130313
